FAERS Safety Report 11224057 (Version 1)
Quarter: 2015Q2

REPORT INFORMATION
  Report Type: Spontaneous
  Country: BA (occurrence: BA)
  Receive Date: 20150629
  Receipt Date: 20150629
  Transmission Date: 20150821
  Serious: Yes (Life-Threatening)
  Sender: FDA-Public Use
  Company Number: BA-ROCHE-1599948

PATIENT
  Sex: Female
  Weight: 62 kg

DRUGS (1)
  1. ZELBORAF [Suspect]
     Active Substance: VEMURAFENIB
     Indication: METASTATIC MALIGNANT MELANOMA
     Dosage: 1920 MG PER DAY
     Route: 048
     Dates: start: 20150217, end: 20150616

REACTIONS (1)
  - Disease progression [Not Recovered/Not Resolved]
